FAERS Safety Report 6626966-7 (Version None)
Quarter: 2010Q1

REPORT INFORMATION
  Report Type: 
  Country: None (occurrence: None)
  Receive Date: 20100308
  Receipt Date: 20100225
  Transmission Date: 20100710
  Serious: Yes (Other)
  Sender: FDA-Public Use
  Company Number: A0846645A

PATIENT
  Age: 44 Year
  Sex: Female

DRUGS (2)
  1. SODIUM FLUORIDE TOOTHPASTE (SODIUM FLUORIDE) [Suspect]
     Indication: DENTAL CARE
     Dosage: DENTAL
     Route: 004
  2. SODIUM FLUORIDE+ISOPENTANE+SODIUM TRIPOLYPHOSPHATE TOOTH (NAFLUORIDE+I [Suspect]
     Indication: DENTAL CARE
     Dosage: DENTAL
     Route: 004
     Dates: start: 20091001

REACTIONS (3)
  - PRODUCT PACKAGING ISSUE [None]
  - PRODUCT QUALITY ISSUE [None]
  - RECTAL HAEMORRHAGE [None]
